FAERS Safety Report 4513243-3 (Version None)
Quarter: 2004Q4

REPORT INFORMATION
  Report Type: 
  Country: None (occurrence: None)
  Receive Date: 20041130
  Receipt Date: 20041119
  Transmission Date: 20050328
  Serious: Yes (Hospitalization)
  Sender: FDA-Public Use
  Company Number: FR-MERCK-0411FRA00074

PATIENT
  Age: 56 Year
  Sex: Female
  Weight: 71 kg

DRUGS (4)
  1. ROFECOXIB [Suspect]
     Indication: ARTHROPATHY
     Route: 048
     Dates: end: 20041010
  2. TROXERUTIN [Concomitant]
     Route: 048
  3. ETIFOXINE [Concomitant]
     Route: 048
  4. ZOLPIDEM TARTRATE [Concomitant]
     Route: 048

REACTIONS (5)
  - CONFUSIONAL STATE [None]
  - ENCEPHALOPATHY [None]
  - GRAND MAL CONVULSION [None]
  - HYPERTENSION [None]
  - MENINGITIS [None]
